FAERS Safety Report 6159046-8 (Version None)
Quarter: 2009Q2

REPORT INFORMATION
  Report Type: 
  Country: None (occurrence: None)
  Receive Date: 20090417
  Receipt Date: 20090407
  Transmission Date: 20091009
  Serious: Yes (Other)
  Sender: FDA-Public Use
  Company Number: JP-PFIZER INC-2009179280

PATIENT

DRUGS (2)
  1. SULFASALAZINE [Suspect]
     Indication: COLITIS ULCERATIVE
     Dosage: 4 G, 1X/DAY
     Dates: start: 20090217, end: 20090304
  2. MESALAZINE [Concomitant]
     Dosage: UNK
     Dates: start: 20090119

REACTIONS (4)
  - ECZEMA [None]
  - INFECTIOUS MONONUCLEOSIS [None]
  - LYMPHADENOPATHY [None]
  - PYREXIA [None]
